FAERS Safety Report 9360813 (Version 1)
Quarter: 2013Q2

REPORT INFORMATION
  Report Type: Spontaneous
  Country: US (occurrence: US)
  Receive Date: 20130621
  Receipt Date: 20130621
  Transmission Date: 20140414
  Serious: No
  Sender: FDA-Public Use
  Company Number: US-009507513-1306USA007646

PATIENT
  Age: 87 Year
  Sex: Female

DRUGS (1)
  1. INVANZ [Suspect]
     Indication: ULCER
     Dosage: 1 G, QD
     Route: 042

REACTIONS (3)
  - Lip oedema [Recovered/Resolved]
  - Eye oedema [Recovered/Resolved]
  - Off label use [Unknown]
